FAERS Safety Report 4474685-8 (Version None)
Quarter: 2004Q4

REPORT INFORMATION
  Report Type: 
  Country: None (occurrence: None)
  Receive Date: 20041012
  Receipt Date: 20040928
  Transmission Date: 20050328
  Serious: Yes (Hospitalization)
  Sender: FDA-Public Use
  Company Number: 2004AP00400

PATIENT
  Age: 67 Year
  Sex: Male

DRUGS (5)
  1. ZOLADEX [Suspect]
     Indication: PROSTATE CANCER
     Dosage: 3.6 MG Q4WK SQ
     Route: 058
     Dates: start: 20020909, end: 20030520
  2. CASODEX [Suspect]
     Indication: PROSTATE CANCER
     Dosage: 80 MG DAILY PO
     Route: 048
     Dates: start: 20030922, end: 20030927
  3. LEUPLIN [Suspect]
     Indication: PROSTATE CANCER
     Dosage: 3.75 MG Q4WK SQ
     Route: 058
     Dates: start: 20030617, end: 20030722
  4. HOJUNALIN [Concomitant]
  5. CHLORMADINONE ACETATE TAB [Concomitant]

REACTIONS (5)
  - DRUG ERUPTION [None]
  - DYSPNOEA [None]
  - INJECTION SITE ERYTHEMA [None]
  - INTERSTITIAL LUNG DISEASE [None]
  - LYMPHOCYTE STIMULATION TEST POSITIVE [None]
